FAERS Safety Report 14189660 (Version 1)
Quarter: 2017Q4

REPORT INFORMATION
  Report Type: Report from Study
  Country: BR (occurrence: BR)
  Receive Date: 20171115
  Receipt Date: 20171115
  Transmission Date: 20180321
  Serious: Yes (Other)
  Sender: FDA-Public Use
  Company Number: PHHY2017BR168173

PATIENT
  Sex: Male
  Weight: 70 kg

DRUGS (2)
  1. EXELON PATCH [Suspect]
     Active Substance: RIVASTIGMINE
     Indication: MEMORY IMPAIRMENT
     Dosage: 4.6 MG, QD PATCH 5 (CM2)
     Route: 062
  2. EXELON PATCH [Suspect]
     Active Substance: RIVASTIGMINE
     Dosage: 9.5 MG, QD PATCH 10 (CM2)
     Route: 062

REACTIONS (16)
  - Agitation [Recovering/Resolving]
  - Muscular weakness [Unknown]
  - Irritability [Recovering/Resolving]
  - Fatigue [Recovering/Resolving]
  - Intracardiac thrombus [Unknown]
  - Insomnia [Recovering/Resolving]
  - Drug ineffective [Unknown]
  - Confusional state [Unknown]
  - Personality disorder [Unknown]
  - Decreased activity [Unknown]
  - Nervousness [Unknown]
  - Impulsive behaviour [Unknown]
  - Frustration tolerance decreased [Unknown]
  - Reading disorder [Unknown]
  - Disorientation [Unknown]
  - Body height decreased [Unknown]
